FAERS Safety Report 9319765 (Version 1)
Quarter: 2013Q1

REPORT INFORMATION
  Report Type: Spontaneous
  Country: US (occurrence: None)
  Receive Date: 20130311
  Receipt Date: 20130311
  Transmission Date: 20140127
  Serious: Yes (Death)
  Sender: FDA-Public Use
  Company Number: 35509

PATIENT
  Age: 51 Year
  Sex: Male

DRUGS (1)
  1. GLASSIA [Suspect]

REACTIONS (1)
  - Chronic obstructive pulmonary disease [None]
